FAERS Safety Report 7381788-7 (Version None)
Quarter: 2011Q1

REPORT INFORMATION
  Report Type: 
  Country: None (occurrence: None)
  Receive Date: 20110329
  Receipt Date: 20101022
  Transmission Date: 20110831
  Serious: Yes (Hospitalization, Other)
  Sender: FDA-Public Use
  Company Number: US-BAYER-200940336NA

PATIENT
  Sex: Female
  Weight: 73.016 kg

DRUGS (17)
  1. OCELLA [Suspect]
     Route: 048
     Dates: start: 20080101, end: 20090901
  2. YASMIN [Suspect]
     Indication: PRODUCT USED FOR UNKNOWN INDICATION
     Dates: start: 20080101, end: 20090910
  3. ALBUTEROL [Concomitant]
     Route: 055
  4. FLOVENT [Concomitant]
     Route: 055
  5. SINGULAIR [Concomitant]
     Dosage: 10 MG, QD
     Route: 048
     Dates: start: 20090320
  6. LIDODERM [Concomitant]
  7. CYCLOBENZAPRINE [Concomitant]
     Dosage: 5 MG, UNK
     Route: 048
     Dates: start: 20090919
  8. VENTOLIN HFA [Concomitant]
     Dosage: 90 UNK, UNK
     Dates: start: 20090418
  9. FEXOFENADINE [Concomitant]
  10. PLAVIX [Concomitant]
     Dosage: 75 MG, UNK
     Route: 048
     Dates: start: 20090910
  11. TERCONAZOLE [Concomitant]
     Dosage: UNK
     Route: 061
     Dates: start: 20090209
  12. FLUCONAZOLE [Concomitant]
     Dosage: 150 MG, UNK
     Route: 048
     Dates: start: 20090209
  13. CIPROFLOXACIN HYDROCHLORIDE [Concomitant]
     Dosage: 500 MG, QD
     Route: 048
     Dates: start: 20090130, end: 20090206
  14. TRINESSA [Concomitant]
     Indication: CONTRACEPTION
     Dosage: UNK
     Dates: start: 20080108, end: 20080923
  15. FENTANYL [Concomitant]
     Dosage: UNK
     Route: 061
     Dates: start: 20090919
  16. YAZ [Suspect]
     Indication: PRODUCT USED FOR UNKNOWN INDICATION
     Dates: start: 20080601
  17. OCELLA [Suspect]
     Dosage: UNK
     Dates: start: 20081020, end: 20090724

REACTIONS (8)
  - TONGUE PARALYSIS [None]
  - CEREBROVASCULAR ACCIDENT [None]
  - DYSARTHRIA [None]
  - VIITH NERVE PARALYSIS [None]
  - GAIT DISTURBANCE [None]
  - NECK PAIN [None]
  - HEADACHE [None]
  - HEMIPARESIS [None]
